FAERS Safety Report 7251220-2 (Version None)
Quarter: 2011Q1

REPORT INFORMATION
  Report Type: 
  Country: None (occurrence: None)
  Receive Date: 20110128
  Receipt Date: 20110117
  Transmission Date: 20110831
  Serious: Yes (Other)
  Sender: FDA-Public Use
  Company Number: US-BAYER-2011-006294

PATIENT
  Sex: Female
  Weight: 68 kg

DRUGS (1)
  1. ALKA-SELTZER PLUS FLU [Suspect]
     Dosage: 2 DF, ONCE
     Route: 048
     Dates: start: 20110114

REACTIONS (3)
  - OROPHARYNGEAL PAIN [None]
  - CHOKING SENSATION [None]
  - NAUSEA [None]
